FAERS Safety Report 19252069 (Version 1)
Quarter: 2021Q2

REPORT INFORMATION
  Report Type: Spontaneous
  Country: US (occurrence: US)
  Receive Date: 20210512
  Receipt Date: 20210512
  Transmission Date: 20210717
  Serious: Yes (Disabling)
  Sender: FDA-Public Use
  Company Number: None

PATIENT
  Age: 29 Year
  Sex: Male
  Weight: 90 kg

DRUGS (1)
  1. LARIAM [Suspect]
     Active Substance: MEFLOQUINE HYDROCHLORIDE
     Indication: MALARIA
     Dosage: ?          QUANTITY:21 TABLET(S);OTHER FREQUENCY:ONCE A WEEK;?
     Route: 048
     Dates: start: 20080601, end: 20081030

REACTIONS (2)
  - Disability [None]
  - Toxicity to various agents [None]

NARRATIVE: CASE EVENT DATE: 20080615
